FAERS Safety Report 8217366 (Version 3)
Quarter: 2012Q4

REPORT INFORMATION
  Report Type: 
  Country: US (occurrence: US)
  Receive Date: 20111101
  Receipt Date: 20120921
  Transmission Date: 20130627
  Serious: Yes (Hospitalization, Other)
  Sender: FDA-Public Use
  Company Number: US-BAYER-2011-102860

PATIENT
  Age: 40 Year
  Sex: Female
  Weight: 63.49 kg

DRUGS (13)
  1. YAZ [Suspect]
     Route: 048
  2. YASMIN [Suspect]
     Indication: CONTRACEPTION
     Dosage: UNK
     Route: 048
     Dates: start: 20090906, end: 20091020
  3. YASMIN [Suspect]
     Indication: PREMENSTRUAL SYNDROME
  4. YASMIN [Suspect]
     Indication: MENORRHAGIA
  5. SKELAXIN [Concomitant]
     Dosage: 800 mg, 1 tabTID
     Route: 048
     Dates: start: 20090902
  6. IBUPROFEN [Concomitant]
     Indication: ARTHRALGIA
     Dosage: 8600 mg,1 tab q6 prn
     Dates: start: 20090902
  7. IBUPROFEN [Concomitant]
     Indication: PAIN IN EXTREMITY
  8. CEFUROXIME AXETIL [Concomitant]
     Indication: BACTERIAL INFECTION
     Dosage: 250 mg,1 tab BID
     Dates: start: 20091016
  9. GARDASIL [Concomitant]
     Dosage: UNK
     Dates: start: 20090902
  10. NSAID^S [Concomitant]
     Dosage: UNK
     Dates: start: 20090902
  11. HYDROCODONE W/APAP [Concomitant]
     Indication: PAIN
  12. SULFAMETHOXAZOLE W/TRIMETHOPRIM [Concomitant]
     Indication: BACTERIAL INFECTION
     Dosage: UNK UNK, BID
     Dates: start: 20090916
  13. HYDROMORPHONE [Concomitant]
     Indication: PAIN
     Dosage: 2 mg, 1 to 2 tablets every four hours as needed
     Route: 048
     Dates: start: 20091021

REACTIONS (7)
  - Deep vein thrombosis [None]
  - Pain [None]
  - Injury [None]
  - Oedema peripheral [None]
  - Pain in extremity [None]
  - Anxiety [None]
  - Cellulitis [None]
